FAERS Safety Report 8635560 (Version 6)
Quarter: 2012Q4

REPORT INFORMATION
  Report Type: Report from Study
  Country: CA (occurrence: CA)
  Receive Date: 20120626
  Receipt Date: 20120925
  Transmission Date: 20130627
  Serious: Yes (Hospitalization, Other)
  Sender: FDA-Public Use
  Company Number: CA-ROCHE-790576

PATIENT
  Age: 85 Year
  Sex: Female
  Weight: 51.76 kg

DRUGS (16)
  1. ROACTEMRA [Suspect]
     Indication: RHEUMATOID ARTHRITIS
     Route: 042
     Dates: start: 20110530, end: 20120917
  2. ASPIRIN [Concomitant]
  3. ENDOCET [Concomitant]
  4. FOSAMAX [Concomitant]
  5. LIPITOR [Concomitant]
  6. ATIVAN [Concomitant]
  7. PANTOPRAZOLE [Concomitant]
  8. NITRO-DUR [Concomitant]
  9. NORVASC [Concomitant]
  10. PANTOLOC [Concomitant]
  11. RAMIPRIL [Concomitant]
  12. BISOPROLOL [Concomitant]
     Route: 065
  13. ASA EC [Concomitant]
  14. ATORVASTATIN [Concomitant]
  15. GLICLAZIDE [Concomitant]
  16. PREDNISONE [Concomitant]

REACTIONS (10)
  - Incoherent [Recovered/Resolved]
  - Abasia [Recovered/Resolved]
  - Hyperkalaemia [Recovered/Resolved]
  - Dehydration [Recovered/Resolved]
  - Thrombosis [Not Recovered/Not Resolved]
  - Pneumonia [Recovering/Resolving]
  - Infection [Not Recovered/Not Resolved]
  - Pyrexia [Not Recovered/Not Resolved]
  - Lethargy [Not Recovered/Not Resolved]
  - Confusional state [Not Recovered/Not Resolved]
